FAERS Safety Report 7702976-3 (Version None)
Quarter: 2011Q3

REPORT INFORMATION
  Report Type: 
  Country: None (occurrence: None)
  Receive Date: 20110823
  Receipt Date: 20110816
  Transmission Date: 20111222
  Serious: Yes (Disabling, Other)
  Sender: FDA-Public Use
  Company Number: AU-AMGEN-AUSSP2011037836

PATIENT
  Age: 35 Year
  Sex: Male
  Weight: 99 kg

DRUGS (1)
  1. ENBREL [Suspect]
     Indication: ANKYLOSING SPONDYLITIS
     Dosage: 50 MG, WEEKLY
     Route: 058
     Dates: start: 20070723, end: 20110601

REACTIONS (7)
  - DIZZINESS [None]
  - HYPOAESTHESIA [None]
  - GAIT DISTURBANCE [None]
  - DEMYELINATION [None]
  - FEELING ABNORMAL [None]
  - NYSTAGMUS [None]
  - DIPLOPIA [None]
